FAERS Safety Report 9283493 (Version 4)
Quarter: 2014Q1

REPORT INFORMATION
  Report Type: Spontaneous
  Country: US (occurrence: US)
  Receive Date: 20130510
  Receipt Date: 20140103
  Transmission Date: 20141002
  Serious: Yes (Hospitalization, Other)
  Sender: FDA-Public Use
  Company Number: US-BAYER-2013-058245

PATIENT
  Age: 42 Year
  Sex: Female
  Weight: 90.7 kg

DRUGS (42)
  1. YAZ [Suspect]
     Indication: MENOMETRORRHAGIA
     Dosage: UNK
     Dates: start: 2009, end: 2011
  2. ZARAH [Suspect]
  3. VITAMIN B12 [Concomitant]
  4. PRILOSEC [Concomitant]
     Dosage: 40 MG, UNK
  5. VALTREX [Concomitant]
     Dosage: 500 MG, UNK
  6. HYDROCODONE W/ACETAMINOPHEN [Concomitant]
  7. SUCRALFATE [Concomitant]
     Dosage: 1 G, UNK
  8. PROMETHAZINE [Concomitant]
  9. DICLOFENAC [Concomitant]
  10. LYRICA [Concomitant]
  11. CYMBALTA [Concomitant]
  12. BENZONATATE [Concomitant]
  13. VALACICLOVIR [Concomitant]
  14. ALEVE [Concomitant]
  15. IMODIUM [LOPERAMIDE,SIMETICONE] [Concomitant]
     Indication: DIARRHOEA
  16. SKELAXIN [Concomitant]
     Indication: MUSCLE SPASMS
  17. MAXALT [Concomitant]
     Indication: HEADACHE
  18. LASIX [Concomitant]
  19. FLONASE [Concomitant]
  20. ASTEPRO [Concomitant]
  21. DEPO MEDROL [Concomitant]
     Indication: ARTHRALGIA
  22. ZYRTEC [Concomitant]
     Indication: SINUS DISORDER
     Dosage: 10 MG, UNK
     Dates: start: 2008
  23. MECLIZINE [Concomitant]
     Indication: VERTIGO
     Dosage: UNK
     Dates: start: 2009
  24. MULTIVITAMIN [Concomitant]
     Dosage: TWENTY DAY PERIOD BEFORE THE ONSET OF INJURIES
  25. NYQUIL [Concomitant]
  26. KENALOG [Concomitant]
     Dosage: 60 MG, UNK
  27. TESSALON [Concomitant]
     Indication: COUGH
     Dosage: 200 MG, ONE TO THREE TIMES PER DAY PRN
  28. BENTYL [Concomitant]
  29. FERROUS SULFATE [Concomitant]
     Dosage: 325 MG, BID
  30. CARAFATE [Concomitant]
     Dosage: 1 MG, BEFORE MEALS) AND HS (INTERPRETED AS AT BEDTIME
  31. MARCAINE WITH EPINEPHRINE [Concomitant]
     Dosage: 0.5%
  32. ASPIRIN [Concomitant]
     Dosage: 81 MG, UNK
  33. MAALOX PLUS [Concomitant]
     Dosage: 30 ML, UNK
  34. XYLOCAINE [Concomitant]
     Dosage: 20 ML, UNK
  35. DONNATAL [Concomitant]
     Dosage: 15.2 MG/5 ML
  36. DILAUDID [Concomitant]
     Dosage: 2 MG, UNK
  37. DICYCLOMINE [Concomitant]
     Dosage: 20 MG, UNK
  38. CEPHALEXIN [Concomitant]
     Dosage: 500 MG, BID
     Route: 048
  39. MAGNESIUM [Concomitant]
     Dosage: 2 [TIMES] DAILY
     Route: 048
  40. GERITOL [FERRIC AMMONIUM CITRATE,METHIONINE,VITAMIN B NOS] [Concomitant]
     Dosage: 1 [TIME] DAILY
     Route: 048
  41. CALCIUM [Concomitant]
     Dosage: 2 [TIMES] DAILY
     Route: 048
  42. ZINC [Concomitant]
     Dosage: 2 [TIMES] DAILY
     Route: 048

REACTIONS (12)
  - Pulmonary embolism [None]
  - Pulmonary embolism [None]
  - Subclavian vein thrombosis [None]
  - Cholecystitis chronic [None]
  - Thrombosis [None]
  - Abdominal pain [None]
  - Pain [None]
  - Injury [None]
  - General physical health deterioration [None]
  - Anxiety [None]
  - Emotional distress [None]
  - Pain [None]
